FAERS Safety Report 6104177-1 (Version None)
Quarter: 2009Q1

REPORT INFORMATION
  Report Type: 
  Country: None (occurrence: None)
  Receive Date: 20090227
  Receipt Date: 20090213
  Transmission Date: 20090719
  Serious: Yes (Hospitalization)
  Sender: FDA-Public Use
  Company Number: 8043432

PATIENT
  Age: 43 Year
  Sex: Male

DRUGS (3)
  1. KEPPRA [Suspect]
     Indication: EPILEPSY
     Dosage: 500 MG 2/D PO
     Route: 048
     Dates: start: 20081216, end: 20090121
  2. EPILIM [Concomitant]
  3. PHENYTOIN [Concomitant]

REACTIONS (2)
  - DRUG INTOLERANCE [None]
  - ISCHAEMIC STROKE [None]
